FAERS Safety Report 23415004 (Version 2)
Quarter: 2024Q1

REPORT INFORMATION
  Report Type: Spontaneous
  Country: US (occurrence: US)
  Receive Date: 20240118
  Receipt Date: 20240124
  Transmission Date: 20240409
  Serious: No
  Sender: FDA-Public Use
  Company Number: US-TAKEDA-2024TUS004987

PATIENT
  Age: 63 Year
  Sex: Female

DRUGS (1)
  1. LIVTENCITY [Suspect]
     Active Substance: MARIBAVIR
     Indication: Cytomegalovirus infection
     Dosage: 2 DOSAGE FORM, BID
     Route: 065
     Dates: start: 20231011

REACTIONS (3)
  - COVID-19 [Recovered/Resolved]
  - Pruritus [Unknown]
  - Fatigue [Unknown]
